FAERS Safety Report 5016897-0 (Version None)
Quarter: 2006Q2

REPORT INFORMATION
  Report Type: 
  Country: None (occurrence: None)
  Receive Date: 20060526
  Receipt Date: 20060511
  Transmission Date: 20061013
  Serious: Yes (Other)
  Sender: FDA-Public Use
  Company Number: NO200605002379

PATIENT
  Age: 91 Year
  Sex: Male

DRUGS (3)
  1. ZYPREXA [Suspect]
     Indication: CONFUSIONAL STATE
     Dosage: 5 MG, DAILY (1/D), ORAL
     Route: 048
     Dates: start: 20050522, end: 20050523
  2. EKVACILLIN (CLOXACILLIN SODIUM) [Concomitant]
  3. HALDOL [Concomitant]

REACTIONS (7)
  - AGGRESSION [None]
  - CONFUSIONAL STATE [None]
  - EPILEPSY [None]
  - FALL [None]
  - RESPIRATORY DISORDER [None]
  - RESTLESSNESS [None]
  - SNORING [None]
